FAERS Safety Report 5398427-7 (Version None)
Quarter: 2007Q3

REPORT INFORMATION
  Report Type: 
  Country: None (occurrence: None)
  Receive Date: 20070726
  Receipt Date: 20070302
  Transmission Date: 20080115
  Serious: No
  Sender: FDA-Public Use
  Company Number: US-AMGEN-KDL213671

PATIENT
  Sex: Male

DRUGS (6)
  1. PROCRIT [Suspect]
     Indication: ANAEMIA
  2. LANTUS [Concomitant]
  3. ACTOS [Concomitant]
  4. NOVOLOG [Concomitant]
  5. HUMALOG [Concomitant]
  6. UNSPECIFIED ANTIDIABETIC AGENT [Concomitant]

REACTIONS (1)
  - HYPERGLYCAEMIA [None]
